FAERS Safety Report 24155283 (Version 1)
Quarter: 2024Q3

REPORT INFORMATION
  Report Type: Spontaneous
  Country: IT (occurrence: IT)
  Receive Date: 20240731
  Receipt Date: 20240731
  Transmission Date: 20241017
  Serious: Yes (Death, Other)
  Sender: ALKEM
  Company Number: IT-ALKEM LABORATORIES LIMITED-IT-ALKEM-2024-15926

PATIENT
  Age: 82 Year
  Sex: Male

DRUGS (9)
  1. AZATHIOPRINE [Suspect]
     Active Substance: AZATHIOPRINE
     Indication: Myasthenia gravis
     Dosage: 50 MG/DAY
     Route: 065
  2. AZATHIOPRINE [Suspect]
     Active Substance: AZATHIOPRINE
     Dosage: 100 MG/DAY (AT 3 MONTHS)
     Route: 065
  3. AZATHIOPRINE [Suspect]
     Active Substance: AZATHIOPRINE
     Dosage: 100 MG/DAY (AT 6 MONTHS)
     Route: 065
  4. PYRIDOSTIGMINE BROMIDE [Suspect]
     Active Substance: PYRIDOSTIGMINE BROMIDE
     Indication: Myasthenia gravis
     Dosage: 240 MG/DAY
     Route: 065
  5. PYRIDOSTIGMINE BROMIDE [Suspect]
     Active Substance: PYRIDOSTIGMINE BROMIDE
     Dosage: 120 MG/DAY (AT 3 MONTHS)
     Route: 065
  6. PYRIDOSTIGMINE BROMIDE [Suspect]
     Active Substance: PYRIDOSTIGMINE BROMIDE
     Dosage: 240 MG/DAY (AT 6 MONTHS)
     Route: 065
  7. PREDNISONE [Suspect]
     Active Substance: PREDNISONE
     Indication: Myasthenia gravis
     Dosage: 60 MG/DAY
     Route: 065
  8. PREDNISONE [Suspect]
     Active Substance: PREDNISONE
     Dosage: 45 MG/DAY (AT 3 MONTHS)
     Route: 065
  9. PREDNISONE [Suspect]
     Active Substance: PREDNISONE
     Dosage: 25 MG/DAY (AT 6 MONTHS)
     Route: 065

REACTIONS (42)
  - Intestinal obstruction [Unknown]
  - Haematuria [Unknown]
  - Rectal haemorrhage [Unknown]
  - COVID-19 [Fatal]
  - Gingival bleeding [Unknown]
  - Hair growth abnormal [Unknown]
  - Lymphadenopathy [Unknown]
  - Feeling abnormal [Unknown]
  - Peripheral swelling [Unknown]
  - Generalised oedema [Unknown]
  - Weight increased [Unknown]
  - Dyspnoea [Unknown]
  - Oliguria [Unknown]
  - Chromaturia [Unknown]
  - Sensory disturbance [Unknown]
  - Thirst [Unknown]
  - Erythema [Unknown]
  - Dyspepsia [Unknown]
  - Dizziness [Unknown]
  - Hypoacusis [Unknown]
  - Depression [Unknown]
  - Affective disorder [Unknown]
  - Chills [Unknown]
  - Eye irritation [Unknown]
  - Conjunctivitis [Unknown]
  - Malaise [Unknown]
  - General physical health deterioration [Unknown]
  - Bowel movement irregularity [Unknown]
  - Pollakiuria [Unknown]
  - Decreased appetite [Unknown]
  - Pain [Unknown]
  - Palpitations [Unknown]
  - Weight decreased [Unknown]
  - Cough [Unknown]
  - Abdominal pain upper [Unknown]
  - Cystitis [Unknown]
  - Genital infection [Unknown]
  - Pyrexia [Unknown]
  - Gastroenteritis [Unknown]
  - Vomiting [Unknown]
  - Urinary tract infection [Unknown]
  - Infection [Unknown]
